FAERS Safety Report 5865750-9 (Version None)
Quarter: 2008Q3

REPORT INFORMATION
  Report Type: 
  Country: None (occurrence: None)
  Receive Date: 20080829
  Receipt Date: 20080823
  Transmission Date: 20090109
  Serious: Yes (Other)
  Sender: FDA-Public Use
  Company Number: PHHY2008CA19279

PATIENT
  Sex: Male

DRUGS (4)
  1. DIOVAN [Suspect]
     Indication: HYPERTENSION
     Dosage: 160 MG
     Route: 048
     Dates: start: 20080725, end: 20080809
  2. EZETROL [Concomitant]
     Dosage: 10 MG
  3. FLOMAX [Concomitant]
  4. PROSCAR [Concomitant]

REACTIONS (4)
  - ASTHENIA [None]
  - MOVEMENT DISORDER [None]
  - PAIN IN EXTREMITY [None]
  - SENSATION OF HEAVINESS [None]
